FAERS Safety Report 8204062-5 (Version None)
Quarter: 2012Q1

REPORT INFORMATION
  Report Type: 
  Country: None (occurrence: None)
  Receive Date: 20120313
  Receipt Date: 20120309
  Transmission Date: 20120608
  Serious: No
  Sender: FDA-Public Use
  Company Number: US-PFIZER INC-2012063558

PATIENT

DRUGS (1)
  1. COLESTID [Suspect]
     Dosage: UNK
     Route: 048

REACTIONS (1)
  - MEDICATION RESIDUE [None]
